FAERS Safety Report 18854929 (Version 1)
Quarter: 2021Q1

REPORT INFORMATION
  Report Type: Spontaneous
  Country: US (occurrence: US)
  Receive Date: 20210206
  Receipt Date: 20210206
  Transmission Date: 20210420
  Serious: Yes (Other)
  Sender: FDA-Public Use
  Company Number: US-ROCHE-2764721

PATIENT
  Sex: Female

DRUGS (1)
  1. XOLAIR [Suspect]
     Active Substance: OMALIZUMAB
     Indication: ASTHMA
     Dosage: 150 MG/ML SD PFS, EVERY 4 WEEKS UNDER THE SKIN
     Route: 058
     Dates: start: 20200413

REACTIONS (5)
  - Blindness [Unknown]
  - Drug ineffective [Unknown]
  - Ill-defined disorder [Unknown]
  - Eye swelling [Unknown]
  - Rash erythematous [Unknown]
